FAERS Safety Report 16086325 (Version 2)
Quarter: 2019Q1

REPORT INFORMATION
  Report Type: Spontaneous
  Country: GB (occurrence: GB)
  Receive Date: 20190318
  Receipt Date: 20190321
  Transmission Date: 20190418
  Serious: Yes (Other)
  Sender: FDA-Public Use
  Company Number: GB-MALLINCKRODT-T201902359

PATIENT
  Age: 14 Year
  Sex: Female
  Weight: 43 kg

DRUGS (4)
  1. UVADEX [Suspect]
     Active Substance: METHOXSALEN
     Dosage: UNK
     Route: 057
     Dates: start: 20190305, end: 20190307
  2. UVADEX [Suspect]
     Active Substance: METHOXSALEN
     Indication: ACUTE GRAFT VERSUS HOST DISEASE
     Dosage: UNK
     Route: 057
     Dates: start: 20190220, end: 20190221
  3. UVADEX [Suspect]
     Active Substance: METHOXSALEN
     Dosage: UNK
     Route: 057
     Dates: start: 20190225, end: 20190228
  4. ACD-A [Concomitant]
     Active Substance: ANHYDROUS CITRIC ACID\DEXTROSE MONOHYDRATE\SODIUM CITRATE
     Indication: ANTICOAGULANT THERAPY
     Dosage: 14:1
     Route: 065

REACTIONS (4)
  - Thrombotic microangiopathy [Unknown]
  - Product use in unapproved indication [Unknown]
  - Gastrointestinal haemorrhage [Unknown]
  - Abdominal pain [Unknown]

NARRATIVE: CASE EVENT DATE: 2019
